FAERS Safety Report 22349360 (Version 1)
Quarter: 2023Q2

REPORT INFORMATION
  Report Type: Spontaneous
  Country: US (occurrence: None)
  Receive Date: 20230519
  Receipt Date: 20230519
  Transmission Date: 20230721
  Serious: No
  Sender: FDA-Public Use
  Company Number: None

PATIENT
  Age: 67 Year
  Sex: Male
  Weight: 85.73 kg

DRUGS (16)
  1. GLEOSTINE [Suspect]
     Active Substance: LOMUSTINE
     Indication: Brain neoplasm malignant
     Route: 048
     Dates: start: 202303, end: 202305
  2. GLEOSTINE [Suspect]
     Active Substance: LOMUSTINE
     Indication: Brain neoplasm malignant
     Route: 048
     Dates: start: 202303, end: 202305
  3. ATORVASTATIN [Concomitant]
     Active Substance: ATORVASTATIN
  4. CYMBALTA [Concomitant]
     Active Substance: DULOXETINE HYDROCHLORIDE
  5. DEXAMETHASONE [Concomitant]
     Active Substance: DEXAMETHASONE
  6. FAMOTIDINE [Concomitant]
     Active Substance: FAMOTIDINE
  7. GRANISETRON [Concomitant]
     Active Substance: GRANISETRON
  8. HYDROCORTISONE [Concomitant]
     Active Substance: HYDROCORTISONE
  9. KEPPRA [Concomitant]
     Active Substance: LEVETIRACETAM
  10. MVASI [Concomitant]
     Active Substance: BEVACIZUMAB-AWWB
  11. PROCHLORPERAZINE [Concomitant]
     Active Substance: PROCHLORPERAZINE
  12. SODIUM CHLORIDE [Concomitant]
     Active Substance: SODIUM CHLORIDE
  13. TOPROL XL [Concomitant]
     Active Substance: METOPROLOL SUCCINATE
  14. TYLENOL [Concomitant]
     Active Substance: ACETAMINOPHEN
  15. XANAX [Concomitant]
     Active Substance: ALPRAZOLAM
  16. ZOFRAN [Concomitant]
     Active Substance: ONDANSETRON HYDROCHLORIDE

REACTIONS (3)
  - Brain neoplasm malignant [None]
  - Malignant neoplasm progression [None]
  - Therapy cessation [None]
